FAERS Safety Report 6325857-9 (Version None)
Quarter: 2009Q3

REPORT INFORMATION
  Report Type: 
  Country: None (occurrence: None)
  Receive Date: 20090824
  Receipt Date: 20090814
  Transmission Date: 20100115
  Serious: Yes (Other)
  Sender: FDA-Public Use
  Company Number: US-CELGENEUS-163-20785-09081262

PATIENT
  Sex: Male

DRUGS (3)
  1. THALOMID [Suspect]
     Indication: MULTIPLE MYELOMA
     Route: 048
     Dates: start: 20071201
  2. THALOMID [Suspect]
     Dosage: 50MG - 200MG
     Route: 048
     Dates: start: 20071001
  3. THALOMID [Suspect]
     Route: 048
     Dates: start: 20070101

REACTIONS (1)
  - CATARACT [None]
